FAERS Safety Report 9832593 (Version 1)
Quarter: 2014Q1

REPORT INFORMATION
  Report Type: Spontaneous
  Country: US (occurrence: US)
  Receive Date: 20140121
  Receipt Date: 20140121
  Transmission Date: 20141002
  Serious: No
  Sender: FDA-Public Use
  Company Number: US-BAYER-2014-010896

PATIENT
  Age: 17 Year
  Sex: Female
  Weight: 61 kg

DRUGS (1)
  1. ALEVE TABLET [Suspect]
     Indication: DYSMENORRHOEA
     Dosage: 2 DF, ONCE

REACTIONS (1)
  - Drug ineffective [None]
